FAERS Safety Report 24964702 (Version 4)
Quarter: 2025Q3

REPORT INFORMATION
  Report Type: Report from Study
  Country: US (occurrence: US)
  Receive Date: 20250213
  Receipt Date: 20250908
  Transmission Date: 20251020
  Serious: Yes (Hospitalization, Other)
  Sender: NOVARTIS
  Company Number: US-002147023-NVSC2025US024503

PATIENT
  Age: 26 Year
  Sex: Female

DRUGS (2)
  1. KESIMPTA [Suspect]
     Active Substance: OFATUMUMAB
     Indication: Multiple sclerosis
     Route: 058
  2. KESIMPTA [Suspect]
     Active Substance: OFATUMUMAB
     Route: 065
     Dates: start: 20250423

REACTIONS (4)
  - Seizure [Unknown]
  - Loss of consciousness [Unknown]
  - Syncope [Unknown]
  - Head injury [Unknown]

NARRATIVE: CASE EVENT DATE: 20250423
